FAERS Safety Report 14544892 (Version 1)
Quarter: 2018Q1

REPORT INFORMATION
  Report Type: Spontaneous
  Country: US (occurrence: US)
  Receive Date: 20180217
  Receipt Date: 20180217
  Transmission Date: 20180509
  Serious: Yes (Hospitalization, Other)
  Sender: FDA-Public Use
  Company Number: US-IMPAX LABORATORIES, INC-2018-IPXL-00422

PATIENT
  Age: 26 Year
  Sex: Male

DRUGS (2)
  1. ADRENACLICK [Suspect]
     Active Substance: EPINEPHRINE
     Indication: HAEMOPTYSIS
     Dosage: UNK
     Route: 065
  2. THROMBIN [Suspect]
     Active Substance: THROMBIN
     Indication: HAEMOPTYSIS
     Dosage: UNK
     Route: 065

REACTIONS (4)
  - Myocardial infarction [Unknown]
  - Drug ineffective [Unknown]
  - Septic shock [Unknown]
  - Acute respiratory distress syndrome [Unknown]
